FAERS Safety Report 23046055 (Version 2)
Quarter: 2023Q4

REPORT INFORMATION
  Report Type: Spontaneous
  Country: FR (occurrence: FR)
  Receive Date: 20231009
  Receipt Date: 20231030
  Transmission Date: 20240110
  Serious: Yes (Other)
  Sender: FDA-Public Use
  Company Number: FR-OTSUKA-2023_025934

PATIENT
  Age: 5 Year
  Sex: Male

DRUGS (1)
  1. ABILIFY [Suspect]
     Active Substance: ARIPIPRAZOLE
     Indication: Product used for unknown indication
     Dosage: UNK
     Route: 064

REACTIONS (6)
  - Cardiac contractility decreased [Recovered/Resolved]
  - Auditory disorder [Unknown]
  - Thinking abnormal [Unknown]
  - Disturbance in attention [Not Recovered/Not Resolved]
  - Memory impairment [Unknown]
  - Foetal exposure during pregnancy [Unknown]
